FAERS Safety Report 25615866 (Version 2)
Quarter: 2025Q3

REPORT INFORMATION
  Report Type: Report from Study
  Country: US (occurrence: US)
  Receive Date: 20250729
  Receipt Date: 20250905
  Transmission Date: 20251020
  Serious: Yes (Hospitalization, Other)
  Sender: ALEXION PHARMACEUTICALS
  Company Number: US-AstraZeneca-CH-00916064A

PATIENT
  Age: 84 Year
  Sex: Male
  Weight: 67.131 kg

DRUGS (3)
  1. TEZEPELUMAB [Suspect]
     Active Substance: TEZEPELUMAB
     Indication: Asthma
     Dosage: 210 MILLIGRAM, Q4W
     Dates: start: 20250424
  2. TEZEPELUMAB [Suspect]
     Active Substance: TEZEPELUMAB
  3. ROSUVASTATIN [Concomitant]
     Active Substance: ROSUVASTATIN
     Route: 065

REACTIONS (18)
  - Cardiac failure [Unknown]
  - Bronchiectasis [Recovered/Resolved]
  - Cough [Unknown]
  - Orthopnoea [Unknown]
  - Hernia [Unknown]
  - Respiratory tract congestion [Unknown]
  - Crepitations [Unknown]
  - Oedema peripheral [Unknown]
  - Choking [Unknown]
  - Secretion discharge [Unknown]
  - Sputum abnormal [Unknown]
  - Retching [Unknown]
  - Dysphagia [Unknown]
  - Pyrexia [Unknown]
  - Pleural effusion [Unknown]
  - Candida infection [Unknown]
  - Atelectasis [Unknown]
  - Dyspnoea [Unknown]

NARRATIVE: CASE EVENT DATE: 20250319
